FAERS Safety Report 25361538 (Version 1)
Quarter: 2025Q2

REPORT INFORMATION
  Report Type: Spontaneous
  Country: PK (occurrence: PK)
  Receive Date: 20250527
  Receipt Date: 20250527
  Transmission Date: 20250717
  Serious: Yes (Hospitalization, Other)
  Sender: LEGACY PHARMACEUTICAL PACKAGING
  Company Number: PK-LEGACY PHARMA INC. SEZC-LGP202505-000158

PATIENT
  Age: 23 Year
  Sex: Male

DRUGS (3)
  1. ATROPINE SULFATE\DIFENOXIN HYDROCHLORIDE [Suspect]
     Active Substance: ATROPINE SULFATE\DIFENOXIN HYDROCHLORIDE
     Indication: Chemical poisoning
     Route: 065
  2. ATROPINE SULFATE\DIFENOXIN HYDROCHLORIDE [Suspect]
     Active Substance: ATROPINE SULFATE\DIFENOXIN HYDROCHLORIDE
     Dosage: 1 MILLILITER, QH
     Route: 065
  3. ATROPINE SULFATE\DIFENOXIN HYDROCHLORIDE [Suspect]
     Active Substance: ATROPINE SULFATE\DIFENOXIN HYDROCHLORIDE
     Dosage: 0.5 MILLILITER, QH
     Route: 065

REACTIONS (12)
  - Substance-induced psychotic disorder [Unknown]
  - Hallucinations, mixed [Unknown]
  - Agitation [Unknown]
  - Delirium [Unknown]
  - Disorganised speech [Unknown]
  - Restlessness [Unknown]
  - Mydriasis [Unknown]
  - Pupillary light reflex tests abnormal [Unknown]
  - Dry mouth [Unknown]
  - Flushing [Unknown]
  - Tachycardia [Unknown]
  - Product use in unapproved indication [Unknown]
